FAERS Safety Report 7243002-2 (Version None)
Quarter: 2011Q1

REPORT INFORMATION
  Report Type: 
  Country: None (occurrence: None)
  Receive Date: 20110125
  Receipt Date: 20110117
  Transmission Date: 20110831
  Serious: Yes (Hospitalization)
  Sender: FDA-Public Use
  Company Number: US-JNJFOC-20101108207

PATIENT
  Sex: Male

DRUGS (19)
  1. PLACEBO [Suspect]
     Route: 048
  2. SOTALOL [Concomitant]
     Route: 065
  3. PROTONIX [Concomitant]
     Route: 065
  4. ALTACE [Concomitant]
     Route: 065
  5. SYMBICORT [Suspect]
     Indication: PRODUCT USED FOR UNKNOWN INDICATION
     Route: 065
  6. LIPITOR [Concomitant]
     Route: 065
  7. MEGACE [Concomitant]
     Route: 065
  8. GALANTAMINE HYDROBROMIDE [Suspect]
     Indication: PRODUCT USED FOR UNKNOWN INDICATION
     Route: 065
  9. APIXABAN [Suspect]
     Indication: THROMBOSIS PROPHYLAXIS
     Route: 048
  10. RAMIPRIL [Concomitant]
     Route: 065
  11. VESICARE [Concomitant]
     Route: 065
  12. RAZADYNE [Suspect]
     Indication: PRODUCT USED FOR UNKNOWN INDICATION
     Route: 065
  13. APIXABAN [Suspect]
     Route: 048
  14. CLOPIDOGREL BISULFATE [Concomitant]
     Route: 065
  15. PANTOPRAZOLE [Concomitant]
     Route: 065
  16. RANEXA [Concomitant]
     Route: 065
  17. ASPIRIN [Concomitant]
     Route: 065
  18. PLACEBO [Suspect]
     Indication: THROMBOSIS PROPHYLAXIS
     Route: 048
  19. ACYCLOVIR [Concomitant]
     Route: 065

REACTIONS (5)
  - HICCUPS [None]
  - CARDIAC FAILURE CONGESTIVE [None]
  - NON-CARDIAC CHEST PAIN [None]
  - OROPHARYNGEAL PAIN [None]
  - TREMOR [None]
